FAERS Safety Report 20491496 (Version 6)
Quarter: 2022Q1

REPORT INFORMATION
  Report Type: Spontaneous
  Country: US (occurrence: US)
  Receive Date: 20220218
  Receipt Date: 20220315
  Transmission Date: 20220423
  Serious: No
  Sender: FDA-Public Use
  Company Number: US-CELGENE-USA-20220204574

PATIENT
  Age: 66 Year
  Sex: Female

DRUGS (1)
  1. POMALYST [Suspect]
     Active Substance: POMALIDOMIDE
     Indication: Plasma cell myeloma
     Dosage: 4 MILLIGRAM
     Route: 048
     Dates: start: 20220131

REACTIONS (4)
  - Pollakiuria [Unknown]
  - Nasopharyngitis [Unknown]
  - Blood pressure decreased [Unknown]
  - Constipation [Unknown]

NARRATIVE: CASE EVENT DATE: 20220201
